FAERS Safety Report 16837682 (Version 1)
Quarter: 2019Q3

REPORT INFORMATION
  Report Type: Spontaneous
  Country: US (occurrence: US)
  Receive Date: 20190731
  Receipt Date: 20190731
  Transmission Date: 20191005
  Serious: No
  Sender: FDA-Public Use
  Company Number: None

PATIENT
  Sex: Female

DRUGS (2)
  1. LEVEMIR [Suspect]
     Active Substance: INSULIN DETEMIR
     Dosage: ?          OTHER FREQUENCY:MULTI DOSE PEN;?
     Route: 058
  2. SAXENDA [Suspect]
     Active Substance: LIRAGLUTIDE
     Dosage: ?          OTHER FREQUENCY:MULTI-DOSE PEN;?
     Route: 058

REACTIONS (6)
  - Product dispensing error [None]
  - Headache [None]
  - Asthenia [None]
  - Paraesthesia [None]
  - Wrong product administered [None]
  - Food craving [None]
